FAERS Safety Report 23866452 (Version 4)
Quarter: 2024Q2

REPORT INFORMATION
  Report Type: Spontaneous
  Country: US (occurrence: US)
  Receive Date: 20240517
  Receipt Date: 20240613
  Transmission Date: 20240716
  Serious: Yes (Other)
  Sender: FDA-Public Use
  Company Number: US-Y-MABS THERAPEUTICS, INC.-SPO2024-US-001567

PATIENT

DRUGS (3)
  1. DANYELZA [Suspect]
     Active Substance: NAXITAMAB-GQGK
     Indication: Neuroblastoma
     Dosage: CYCLE 1, DOSE 1
     Route: 042
     Dates: start: 20240318, end: 20240318
  2. GRANULOCYTE-MACROPHAGE COLONY-STIMULATING FACTOR [Concomitant]
     Active Substance: GRANULOCYTE-MACROPHAGE COLONY-STIMULATING FACTOR
     Indication: Neuroblastoma
     Dosage: CYCLE 1
     Route: 058
     Dates: start: 20240312, end: 20240317
  3. GRANULOCYTE-MACROPHAGE COLONY-STIMULATING FACTOR [Concomitant]
     Active Substance: GRANULOCYTE-MACROPHAGE COLONY-STIMULATING FACTOR
     Dosage: CYCLE 2, DOSE 1
     Route: 058
     Dates: start: 20240329, end: 20240329

REACTIONS (4)
  - Anaphylactic reaction [Unknown]
  - Neutrophil count increased [Unknown]
  - Hypoxia [Recovered/Resolved]
  - Cough [Recovered/Resolved]

NARRATIVE: CASE EVENT DATE: 20240318
